FAERS Safety Report 6662222-9 (Version None)
Quarter: 2010Q1

REPORT INFORMATION
  Report Type: 
  Country: None (occurrence: None)
  Receive Date: 20100331
  Receipt Date: 20100324
  Transmission Date: 20100710
  Serious: Yes (Death)
  Sender: FDA-Public Use
  Company Number: GXKR2010GB03484

PATIENT
  Age: 63 Year
  Sex: Female

DRUGS (4)
  1. VINORELBINE [Suspect]
     Indication: BREAST CANCER METASTATIC
  2. VINORELBINE [Suspect]
     Indication: DISEASE PROGRESSION
  3. TRASTUZUMAB [Concomitant]
     Indication: BREAST CANCER METASTATIC
  4. TRASTUZUMAB [Concomitant]
     Indication: DISEASE PROGRESSION

REACTIONS (8)
  - ABDOMINAL PAIN [None]
  - CLOSTRIDIAL INFECTION [None]
  - DIARRHOEA [None]
  - HYPOTENSION [None]
  - MEGACOLON [None]
  - MULTI-ORGAN FAILURE [None]
  - SEPTIC SHOCK [None]
  - URINE OUTPUT DECREASED [None]
